FAERS Safety Report 4886581-2 (Version None)
Quarter: 2005Q4

REPORT INFORMATION
  Report Type: 
  Country: None (occurrence: None)
  Receive Date: 20051220
  Receipt Date: 20050110
  Transmission Date: 20060501
  Serious: Yes (Hospitalization, Other)
  Sender: FDA-Public Use
  Company Number: HQWYE517011JAN05

PATIENT
  Age: 18 Year
  Sex: Female
  Weight: 53.57 kg

DRUGS (3)
  1. EFFEXOR XR [Suspect]
     Indication: BIPOLAR DISORDER
     Dosage: SEE IMAGE
     Route: 048
     Dates: end: 20050113
  2. EFFEXOR XR [Suspect]
     Indication: BIPOLAR DISORDER
     Dosage: SEE IMAGE
     Route: 048
     Dates: start: 20001101
  3. TEGRETOL [Concomitant]

REACTIONS (1)
  - GRAND MAL CONVULSION [None]
